FAERS Safety Report 23954179 (Version 1)
Quarter: 2024Q2

REPORT INFORMATION
  Report Type: Report from Study
  Country: US (occurrence: US)
  Receive Date: 20240609
  Receipt Date: 20240609
  Transmission Date: 20240716
  Serious: Yes (Hospitalization)
  Sender: FDA-Public Use
  Company Number: US-ABBVIE-5766583

PATIENT
  Sex: Female
  Weight: 89.811 kg

DRUGS (1)
  1. HUMIRA [Suspect]
     Active Substance: ADALIMUMAB
     Indication: Rheumatoid arthritis
     Dosage: 2 NEEDLES
     Route: 058
     Dates: start: 20240115

REACTIONS (9)
  - Pneumonia [Recovering/Resolving]
  - Paranasal sinus hypersecretion [Unknown]
  - Atrial fibrillation [Unknown]
  - Sinusitis [Unknown]
  - Hypotension [Unknown]
  - Oropharyngeal pain [Unknown]
  - Communication disorder [Unknown]
  - Influenza [Unknown]
  - Mobility decreased [Unknown]

NARRATIVE: CASE EVENT DATE: 20240101
